FAERS Safety Report 9455279 (Version 1)
Quarter: 2013Q3

REPORT INFORMATION
  Report Type: Spontaneous
  Country: US (occurrence: US)
  Receive Date: 20130813
  Receipt Date: 20130813
  Transmission Date: 20140515
  Serious: Yes (Hospitalization)
  Sender: FDA-Public Use
  Company Number: US-BAYER-2013-096594

PATIENT
  Age: 35 Year
  Sex: Female

DRUGS (16)
  1. YAZ [Suspect]
  2. OCELLA [Suspect]
  3. PIROXICAM [Concomitant]
     Dosage: 10 MG, UNK
     Dates: start: 20101211
  4. CONCERTA [Concomitant]
     Indication: ATTENTION DEFICIT/HYPERACTIVITY DISORDER
     Dosage: 36 MG, UNK
     Dates: start: 20101211
  5. CONCERTA [Concomitant]
     Indication: ATTENTION DEFICIT/HYPERACTIVITY DISORDER
     Dosage: 54 MG, 1 TABLET DAILY
     Route: 048
  6. SINGULAIR [Concomitant]
     Dosage: 10 MG, DAILY
     Dates: start: 20101215
  7. PROVENTIL HFA [Concomitant]
  8. WELLBUTRIN [Concomitant]
     Indication: DEPRESSION
     Dosage: 150 MG, 3 TABLET DAILY
     Route: 048
  9. WELLBUTRIN [Concomitant]
     Indication: ANXIETY
  10. FOLIC ACID [Concomitant]
     Dosage: 4 MG, DAILY
     Route: 048
  11. ADVAIR [Concomitant]
     Dosage: 1 PUFF DAILY
  12. ALLEGRA [Concomitant]
  13. VITAMIN D3 [Concomitant]
     Dosage: 1000 IU, ONE AT HS
     Route: 048
  14. FLAXSEED OIL [Concomitant]
     Dosage: 100 MG, 2 AT HS
     Route: 048
  15. TIZANIDINE [Concomitant]
     Dosage: 2 MG, UNK
     Dates: start: 20101221
  16. OXYCODONE W/PARACETAMOL [Concomitant]
     Dosage: 5/325MG
     Dates: start: 20101221

REACTIONS (2)
  - Deep vein thrombosis [None]
  - Pulmonary embolism [None]
